FAERS Safety Report 22293578 (Version 2)
Quarter: 2023Q2

REPORT INFORMATION
  Report Type: Spontaneous
  Country: LV (occurrence: LV)
  Receive Date: 20230508
  Receipt Date: 20230608
  Transmission Date: 20230722
  Serious: Yes (Hospitalization, Other)
  Sender: FDA-Public Use
  Company Number: LV-GLENMARK PHARMACEUTICALS-2023GMK081137

PATIENT
  Age: 22 Year
  Sex: Male

DRUGS (40)
  1. OLANZAPINE [Suspect]
     Active Substance: OLANZAPINE
     Indication: Psychotic symptom
     Dosage: 10 MILLIGRAM, ONCE A DAY (10 MILLIGRAM, QD (COMBINATION WITH HALOPERIDOL)
     Route: 065
     Dates: start: 202104
  2. OLANZAPINE [Suspect]
     Active Substance: OLANZAPINE
     Indication: Schizophrenia
     Dosage: 20 MILLIGRAM, ONCE A DAY (20 MILLIGRAM, QD (COMBINATION WITH HALOPERIDOL)
     Route: 065
     Dates: start: 202104
  3. OLANZAPINE [Suspect]
     Active Substance: OLANZAPINE
     Dosage: 20 MILLIGRAM, ONCE A DAY (20 MILLIGRAM, QD (COMBINATION WITH HALOPERIDOL)
     Route: 065
     Dates: start: 202105
  4. OLANZAPINE [Suspect]
     Active Substance: OLANZAPINE
     Dosage: 20 MILLIGRAM, ONCE A DAY (20 MILLIGRAM, QD (COMBINATION WITH HALOPERIDOL)
     Route: 065
     Dates: start: 202105
  5. OLANZAPINE [Suspect]
     Active Substance: OLANZAPINE
     Dosage: 20 MILLIGRAM, ONCE A DAY COMBINATION WITH RISPERIDONE AND QUETIAPINE
     Route: 065
     Dates: start: 202107
  6. OLANZAPINE [Suspect]
     Active Substance: OLANZAPINE
     Dosage: 20 MILLIGRAM, ONCE A DAY (20 MILLIGRAM, QD (COMBINATION WITH RISPERIDONE)
     Route: 065
     Dates: start: 202106
  7. OLANZAPINE [Suspect]
     Active Substance: OLANZAPINE
     Dosage: 20 MILLIGRAM, ONCE A DAY COMBINATION WITH CARIPRAZINE, BUSPIRONE
     Route: 065
     Dates: start: 202111
  8. OLANZAPINE [Suspect]
     Active Substance: OLANZAPINE
     Dosage: 20 MILLIGRAM COMBINATION WITH RISPERIDONE, BUSPIRONE AND ALPRAZOLAM
     Route: 065
     Dates: start: 202109
  9. OLANZAPINE [Suspect]
     Active Substance: OLANZAPINE
     Dosage: 20 MILLIGRAM, ONCE A DAY COMBINATION WITH RISPERIDONE, CARIPRAZINE, BUSPIRONE, ALPRAZOLAM
     Route: 065
     Dates: start: 202110
  10. OLANZAPINE [Suspect]
     Active Substance: OLANZAPINE
     Dosage: 20 MILLIGRAM (20 MILLIGRAM (COMBINATION WITH CARIPRAZINE, BUSPIRONE)
     Route: 065
     Dates: start: 202112
  11. OLANZAPINE [Suspect]
     Active Substance: OLANZAPINE
     Dosage: 10 MILLIGRAM, ONCE A DAY (10 MILLIGRAM, QD (COMBINATION WITH CARIPRAZINE)
     Route: 065
     Dates: start: 202201
  12. OLANZAPINE [Suspect]
     Active Substance: OLANZAPINE
     Dosage: 10 MILLIGRAM, ONCE A DAY (10 MILLIGRAM, QD (COMBINATION WITH CARIPRAZINE)
     Route: 065
     Dates: start: 202202
  13. ARIPIPRAZOLE [Suspect]
     Active Substance: ARIPIPRAZOLE
     Indication: Psychotic symptom
     Dosage: 15 MILLIGRAM
     Route: 065
     Dates: start: 202105
  14. ARIPIPRAZOLE [Suspect]
     Active Substance: ARIPIPRAZOLE
     Indication: Schizophrenia
  15. BUSPIRONE [Suspect]
     Active Substance: BUSPIRONE HYDROCHLORIDE
     Indication: Psychotic symptom
     Dosage: 30 MILLIGRAM, ONCE A DAY
     Route: 065
     Dates: start: 202109
  16. BUSPIRONE [Suspect]
     Active Substance: BUSPIRONE HYDROCHLORIDE
     Indication: Schizophrenia
     Dosage: 30 MILLIGRAM, ONCE A DAY
     Route: 065
     Dates: start: 202110
  17. BUSPIRONE [Suspect]
     Active Substance: BUSPIRONE HYDROCHLORIDE
     Dosage: 30 MILLIGRAM, ONCE A DAY
     Route: 065
     Dates: start: 202111
  18. BUSPIRONE [Suspect]
     Active Substance: BUSPIRONE HYDROCHLORIDE
     Dosage: UNK (DOWN TITRATION OF BUSPIRONE)
     Route: 065
     Dates: start: 202112
  19. HALOPERIDOL [Suspect]
     Active Substance: HALOPERIDOL
     Indication: Psychotic symptom
     Dosage: 15 MILLIGRAM, ONCE A DAY
     Route: 065
     Dates: start: 202104
  20. HALOPERIDOL [Suspect]
     Active Substance: HALOPERIDOL
     Indication: Schizophrenia
     Dosage: 7.5 MILLIGRAM, ONCE A DAY
     Route: 065
     Dates: start: 202104
  21. HALOPERIDOL [Suspect]
     Active Substance: HALOPERIDOL
     Dosage: 7.5 MILLIGRAM, ONCE A DAY
     Route: 065
     Dates: start: 202105
  22. HALOPERIDOL [Suspect]
     Active Substance: HALOPERIDOL
     Dosage: 15 MILLIGRAM, ONCE A DAY
     Route: 065
     Dates: start: 202105
  23. QUETIAPINE [Suspect]
     Active Substance: QUETIAPINE
     Indication: Psychotic symptom
     Dosage: 50 MILLIGRAM, ONCE A DAY
     Route: 065
     Dates: start: 202104
  24. QUETIAPINE [Suspect]
     Active Substance: QUETIAPINE
     Indication: Schizophrenia
     Dosage: 50 MILLIGRAM, ONCE A DAY
     Route: 065
     Dates: start: 202107
  25. RISPERIDONE [Suspect]
     Active Substance: RISPERIDONE
     Indication: Psychotic symptom
     Dosage: 4 MILLIGRAM, ONCE A DAY (4 MG/DAY)
     Route: 065
     Dates: start: 202103
  26. RISPERIDONE [Suspect]
     Active Substance: RISPERIDONE
     Indication: Schizophrenia
     Dosage: 6 MILLIGRAM, ONCE A DAY
     Route: 065
     Dates: start: 202106
  27. RISPERIDONE [Suspect]
     Active Substance: RISPERIDONE
     Dosage: 6 MILLIGRAM, ONCE A DAY
     Route: 065
     Dates: start: 202107
  28. RISPERIDONE [Suspect]
     Active Substance: RISPERIDONE
     Dosage: UNK (DOWN-TITRATION)
     Route: 065
     Dates: start: 202110
  29. RISPERIDONE [Suspect]
     Active Substance: RISPERIDONE
     Dosage: 6 MILLIGRAM
     Route: 065
     Dates: start: 202109
  30. ALPRAZOLAM [Concomitant]
     Active Substance: ALPRAZOLAM
     Indication: Psychotic symptom
     Dosage: UNK
     Route: 065
     Dates: start: 202109
  31. ALPRAZOLAM [Concomitant]
     Active Substance: ALPRAZOLAM
     Dosage: UNK
     Route: 065
     Dates: start: 202110
  32. CARIPRAZINE [Concomitant]
     Active Substance: CARIPRAZINE
     Indication: Schizophrenia
     Dosage: 6 MILLIGRAM, ONCE A DAY (6 MILLIGRAM, QD (UP-TITRATION)
     Route: 065
     Dates: start: 202110
  33. CARIPRAZINE [Concomitant]
     Active Substance: CARIPRAZINE
     Indication: Psychotic symptom
     Dosage: 6 MILLIGRAM, ONCE A DAY (QD)
     Route: 065
     Dates: start: 202111
  34. CARIPRAZINE [Concomitant]
     Active Substance: CARIPRAZINE
     Dosage: 6 MILLIGRAM, ONCE A DAY (QD)
     Route: 065
     Dates: start: 202112
  35. CARIPRAZINE [Concomitant]
     Active Substance: CARIPRAZINE
     Dosage: 6 MILLIGRAM, ONCE A DAY (QD)
     Route: 065
     Dates: start: 202201
  36. CARIPRAZINE [Concomitant]
     Active Substance: CARIPRAZINE
     Dosage: 6 MILLIGRAM, ONCE A DAY (QD)
     Route: 065
     Dates: start: 202202
  37. DIAZEPAM [Concomitant]
     Active Substance: DIAZEPAM
     Indication: Psychotic symptom
     Dosage: UNK
     Route: 065
     Dates: start: 202104
  38. DIAZEPAM [Concomitant]
     Active Substance: DIAZEPAM
     Dosage: UNK
     Route: 065
     Dates: start: 202105
  39. TRIHEXYPHENIDYL [Concomitant]
     Active Substance: TRIHEXYPHENIDYL
     Indication: Parkinsonism
     Dosage: UNK
     Route: 065
     Dates: start: 202104
  40. TRIHEXYPHENIDYL [Concomitant]
     Active Substance: TRIHEXYPHENIDYL
     Dosage: UNK
     Route: 065
     Dates: start: 202105

REACTIONS (4)
  - Schizophrenia [Recovering/Resolving]
  - Parkinsonism [Recovering/Resolving]
  - Treatment noncompliance [Recovering/Resolving]
  - Therapeutic product effect incomplete [Unknown]
